FAERS Safety Report 11468389 (Version 1)
Quarter: 2015Q3

REPORT INFORMATION
  Report Type: Spontaneous
  Country: US (occurrence: None)
  Receive Date: 20150904
  Receipt Date: 20150904
  Transmission Date: 20151125
  Serious: Yes (Hospitalization, Disabling)
  Sender: FDA-Public Use
  Company Number: None

PATIENT
  Age: 30 Year
  Sex: Male
  Weight: 75.3 kg

DRUGS (6)
  1. INVEGA [Concomitant]
     Active Substance: PALIPERIDONE
     Indication: SCHIZOAFFECTIVE DISORDER
     Dosage: LATE 2007 TO MID 2013?3-4 AND A HALF PILLS
     Route: 048
     Dates: start: 2007, end: 2013
  2. HERBAL SUPPLEMENTS [Concomitant]
  3. LATUDA [Suspect]
     Active Substance: LURASIDONE HYDROCHLORIDE
     Indication: BIPOLAR DISORDER
     Dosage: 1 PILL
     Route: 048
     Dates: start: 2014, end: 2015
  4. HYPNOTHERAPY APPS [Concomitant]
  5. OMEGA  FISH OIL [Concomitant]
     Active Substance: FISH OIL\OMEGA-3 FATTY ACIDS
  6. VITAMIN D3 [Concomitant]
     Active Substance: CHOLECALCIFEROL

REACTIONS (13)
  - Akathisia [None]
  - Fatigue [None]
  - Abnormal behaviour [None]
  - Therapy cessation [None]
  - Dizziness [None]
  - Somnolence [None]
  - Insomnia [None]
  - Screaming [None]
  - White blood cell count decreased [None]
  - Nausea [None]
  - Apparent death [None]
  - Phonophobia [None]
  - Bipolar disorder [None]
